FAERS Safety Report 10497538 (Version 3)
Quarter: 2014Q4

REPORT INFORMATION
  Report Type: Spontaneous
  Country: US (occurrence: None)
  Receive Date: 20141002
  Receipt Date: 20141015
  Transmission Date: 20150528
  Serious: Yes (Other)
  Sender: FDA-Public Use
  Company Number: ADR-2014-01790

PATIENT
  Age: 62 Year
  Sex: Male

DRUGS (1)
  1. BACLOFEN INTRATHECAL [Suspect]
     Active Substance: BACLOFEN
     Indication: MUSCLE SPASTICITY
     Dosage: 40.05 MCG/DAY

REACTIONS (4)
  - Incision site complication [None]
  - Implant site irritation [None]
  - Blood pressure increased [None]
  - Implant site vesicles [None]
